FAERS Safety Report 9735643 (Version 2)
Quarter: 2013Q4

REPORT INFORMATION
  Report Type: Report from Study
  Country: US (occurrence: US)
  Receive Date: 20131206
  Receipt Date: 20131206
  Transmission Date: 20140711
  Serious: Yes (Other)
  Sender: FDA-Public Use
  Company Number: PHEH2013US023022

PATIENT
  Age: 19 Year
  Sex: Male
  Weight: 80 kg

DRUGS (3)
  1. TOBI PODHALER [Suspect]
     Indication: CYSTIC FIBROSIS
     Dosage: 112 MG, BID
  2. TOBI PODHALER [Suspect]
     Indication: PSEUDOMONAS INFECTION
     Dosage: 112 MG, BID
     Dates: start: 20131006, end: 20131015
  3. TOBI [Suspect]
     Dosage: UNK UKN, UNK

REACTIONS (6)
  - Infective pulmonary exacerbation of cystic fibrosis [Unknown]
  - Cough [Recovering/Resolving]
  - Malaise [Unknown]
  - Weight decreased [Unknown]
  - Pulmonary function test decreased [None]
  - Nasal congestion [Unknown]
